FAERS Safety Report 6198317-6 (Version None)
Quarter: 2009Q2

REPORT INFORMATION
  Report Type: 
  Country: None (occurrence: None)
  Receive Date: 20090518
  Receipt Date: 20090129
  Transmission Date: 20091009
  Serious: Yes (Life-Threatening, Hospitalization)
  Sender: FDA-Public Use
  Company Number: WAES 0811USA03126

PATIENT
  Age: 30 Year
  Sex: Male
  Weight: 80.7403 kg

DRUGS (10)
  1. ISENTRESS [Suspect]
     Indication: HIV INFECTION
     Dosage: 600 MG/Q12H/PO
     Route: 048
     Dates: start: 20080501, end: 20080901
  2. BACTRIM [Concomitant]
  3. DEPAKOTE [Concomitant]
  4. EPZICOM [Concomitant]
  5. NORVIR [Concomitant]
  6. PREZISTA [Concomitant]
  7. VASERETIC [Concomitant]
  8. VIREAD [Concomitant]
  9. AZITHROMYCIN [Concomitant]
  10. VITAMINS (UNSPECIFIED) [Concomitant]

REACTIONS (1)
  - ANAEMIA [None]
